FAERS Safety Report 18355408 (Version 1)
Quarter: 2020Q4

REPORT INFORMATION
  Report Type: Spontaneous
  Country: US (occurrence: US)
  Receive Date: 20201006
  Receipt Date: 20201006
  Transmission Date: 20210114
  Serious: No
  Sender: FDA-Public Use
  Company Number: None

PATIENT
  Age: 69 Year
  Sex: Male
  Weight: 98 kg

DRUGS (2)
  1. HYDROMORPHONE (HYDROMORPHONE) [Suspect]
     Active Substance: HYDROMORPHONE
     Indication: PAIN
     Route: 042
     Dates: start: 20170912, end: 20170912
  2. HYDROMORPHONE (HYDROMORPHONE HYDROCHLORIDE ) [Suspect]
     Active Substance: HYDROMORPHONE
     Indication: PAIN
     Dosage: ?          OTHER FREQUENCY:OTHER;?
     Route: 048
     Dates: start: 20170904, end: 20170912

REACTIONS (6)
  - Respiratory rate decreased [None]
  - Somnolence [None]
  - Miosis [None]
  - Toxicity to various agents [None]
  - Mental status changes [None]
  - Apnoea [None]

NARRATIVE: CASE EVENT DATE: 20170912
